FAERS Safety Report 9397300 (Version 1)
Quarter: 2013Q3

REPORT INFORMATION
  Report Type: Report from Study
  Country: US (occurrence: US)
  Receive Date: 20130712
  Receipt Date: 20130712
  Transmission Date: 20140515
  Serious: Yes (Hospitalization, Other)
  Sender: FDA-Public Use
  Company Number: US-ROCHE-1244668

PATIENT
  Age: 60 Year
  Sex: Male

DRUGS (7)
  1. VEMURAFENIB [Suspect]
     Indication: MALIGNANT MELANOMA
     Route: 048
     Dates: start: 20130114, end: 20130129
  2. VEMURAFENIB [Suspect]
     Route: 048
     Dates: start: 20130204
  3. IPILIMUMAB [Suspect]
     Indication: MALIGNANT MELANOMA
     Route: 042
     Dates: start: 20130206
  4. IPILIMUMAB [Suspect]
     Dosage: DOSE 903 MG
     Route: 042
     Dates: start: 20130305
  5. TRIAMCINOLONE [Concomitant]
     Route: 065
     Dates: start: 20130124
  6. NEXIUM [Concomitant]
  7. TESSALON PERLES [Concomitant]
     Route: 065
     Dates: start: 20130107

REACTIONS (3)
  - Abdominal distension [Recovered/Resolved]
  - Abdominal pain [Recovered/Resolved]
  - Squamous cell carcinoma [Recovered/Resolved]
